FAERS Safety Report 14823040 (Version 1)
Quarter: 2018Q2

REPORT INFORMATION
  Report Type: Spontaneous
  Country: US (occurrence: US)
  Receive Date: 20180427
  Receipt Date: 20180427
  Transmission Date: 20180711
  Serious: Yes (Other)
  Sender: FDA-Public Use
  Company Number: US-JAZZ-2018-US-006858

PATIENT
  Sex: Female

DRUGS (1)
  1. PRIALT [Suspect]
     Active Substance: ZICONOTIDE ACETATE
     Indication: PAIN
     Dosage: UNK ?G, QH
     Route: 037
     Dates: start: 20141120

REACTIONS (13)
  - Mental impairment [Unknown]
  - Arachnoiditis [Unknown]
  - Mass [Unknown]
  - Pain [Unknown]
  - Inflammation [Unknown]
  - Muscular weakness [Unknown]
  - Spinal operation [Unknown]
  - Headache [Unknown]
  - Bedridden [Unknown]
  - Musculoskeletal pain [Unknown]
  - Aphasia [Unknown]
  - Feeling abnormal [Unknown]
  - Withdrawal syndrome [Unknown]

NARRATIVE: CASE EVENT DATE: 20141120
